FAERS Safety Report 16825589 (Version 1)
Quarter: 2019Q3

REPORT INFORMATION
  Report Type: Spontaneous
  Country: US (occurrence: US)
  Receive Date: 20190919
  Receipt Date: 20190919
  Transmission Date: 20191005
  Serious: No
  Sender: FDA-Public Use
  Company Number: US-ASTRAZENECA-2019SF32225

PATIENT
  Sex: Female

DRUGS (6)
  1. OLAPARIB. [Suspect]
     Active Substance: OLAPARIB
     Indication: OVARIAN CANCER
     Dosage: 2 TABLETS, TWICE A DAY
     Route: 048
     Dates: start: 20190712, end: 2019
  2. OLANZAPINE. [Concomitant]
     Active Substance: OLANZAPINE
  3. DEXAMETHASONE. [Concomitant]
     Active Substance: DEXAMETHASONE
  4. ZOFRAN [Concomitant]
     Active Substance: ONDANSETRON HYDROCHLORIDE
  5. OLAPARIB. [Suspect]
     Active Substance: OLAPARIB
     Indication: OVARIAN CANCER
     Dosage: 2 TABLETS, TWICE A DAY
     Route: 048
     Dates: start: 2019, end: 2019
  6. LEXAPRO [Concomitant]
     Active Substance: ESCITALOPRAM OXALATE

REACTIONS (1)
  - Hyperaesthesia [Recovering/Resolving]

NARRATIVE: CASE EVENT DATE: 2019
